FAERS Safety Report 6814225-9 (Version None)
Quarter: 2010Q3

REPORT INFORMATION
  Report Type: 
  Country: None (occurrence: None)
  Receive Date: 20100702
  Receipt Date: 20100623
  Transmission Date: 20110219
  Serious: Yes (Hospitalization)
  Sender: FDA-Public Use
  Company Number: GB-NOVOPROD-310734

PATIENT
  Sex: Female

DRUGS (6)
  1. NOVORAPID FLEXPEN [Suspect]
     Indication: TYPE 1 DIABETES MELLITUS
     Dosage: 6 IU, TID
     Route: 058
  2. NOVORAPID FLEXPEN [Suspect]
     Dosage: 4 IU, TID
     Route: 058
  3. NOVORAPID FLEXPEN [Suspect]
     Dosage: 13 IU, UNK
     Route: 058
  4. LANTUS [Suspect]
     Indication: DIABETES MELLITUS
     Dosage: 10 IU, QD
     Route: 058
  5. LANTUS [Suspect]
     Dosage: 40 UNK, UNK
     Route: 058
  6. LANTUS [Suspect]
     Dosage: 12 UNK, UNK
     Route: 058

REACTIONS (4)
  - BLOOD GLUCOSE INCREASED [None]
  - DIABETIC KETOACIDOSIS [None]
  - LOSS OF CONSCIOUSNESS [None]
  - URINE KETONE BODY PRESENT [None]
